FAERS Safety Report 18972641 (Version 1)
Quarter: 2021Q1

REPORT INFORMATION
  Report Type: Spontaneous
  Country: GB (occurrence: GB)
  Receive Date: 20210305
  Receipt Date: 20210305
  Transmission Date: 20210420
  Serious: Yes (Life-Threatening, Hospitalization, Other)
  Sender: FDA-Public Use
  Company Number: GB-AUROBINDO-AUR-APL-2021-008687

PATIENT
  Age: 64 Year
  Sex: Male
  Weight: 89.81 kg

DRUGS (2)
  1. INDAPAMIDE. [Suspect]
     Active Substance: INDAPAMIDE
     Indication: HYPERTENSION
     Dosage: 2.5 MILLIGRAM
     Route: 048
     Dates: start: 201611, end: 20200119
  2. LOSARTAN. [Suspect]
     Active Substance: LOSARTAN
     Indication: HYPERTENSION
     Dosage: 25 MILLIGRAM
     Route: 048
     Dates: start: 201611, end: 20200119

REACTIONS (4)
  - Hypocalcaemia [Unknown]
  - Hypokalaemia [Unknown]
  - Seizure [Recovered/Resolved with Sequelae]
  - Product monitoring error [Unknown]

NARRATIVE: CASE EVENT DATE: 20200119
